FAERS Safety Report 24659800 (Version 1)
Quarter: 2024Q4

REPORT INFORMATION
  Report Type: Spontaneous
  Country: US (occurrence: US)
  Receive Date: 20241125
  Receipt Date: 20241125
  Transmission Date: 20250114
  Serious: No
  Sender: BAYER HEALTHCARE PHARMACEUTICALS INC.
  Company Number: US-BAYER-2024A164437

PATIENT
  Sex: Female

DRUGS (4)
  1. MIRENA [Suspect]
     Active Substance: LEVONORGESTREL
     Indication: Asthma
     Dosage: 20?G/DAY
     Route: 015
     Dates: start: 201908
  2. MIRENA [Suspect]
     Active Substance: LEVONORGESTREL
     Indication: Heavy menstrual bleeding
  3. NUCALA [Concomitant]
     Active Substance: MEPOLIZUMAB
     Indication: Asthma
  4. PREDNISONE [Concomitant]
     Active Substance: PREDNISONE
     Indication: Influenza
     Dosage: UNK UNK, QD

REACTIONS (1)
  - Influenza [Recovered/Resolved]
